FAERS Safety Report 12423820 (Version 1)
Quarter: 2016Q2

REPORT INFORMATION
  Report Type: Spontaneous
  Country: IT (occurrence: IT)
  Receive Date: 20160601
  Receipt Date: 20160601
  Transmission Date: 20160815
  Serious: Yes (Hospitalization)
  Sender: FDA-Public Use
  Company Number: IT-PFIZER INC-2016277880

PATIENT
  Age: 53 Year
  Sex: Female
  Weight: 68 kg

DRUGS (2)
  1. ADOPORT [Concomitant]
     Active Substance: TACROLIMUS
     Indication: LIVER TRANSPLANT REJECTION
     Dosage: 2.5 MG, UNK
     Route: 048
     Dates: start: 20140404, end: 20160513
  2. ZOLOFT [Suspect]
     Active Substance: SERTRALINE HYDROCHLORIDE
     Indication: DEPRESSION
     Dosage: 75 MG, UNK
     Dates: start: 20160408, end: 20160416

REACTIONS (5)
  - Rhabdomyolysis [Recovering/Resolving]
  - Blood creatinine increased [Recovering/Resolving]
  - Intention tremor [Recovering/Resolving]
  - Blood bilirubin increased [Recovering/Resolving]
  - Cholestasis [Recovering/Resolving]

NARRATIVE: CASE EVENT DATE: 20160511
